FAERS Safety Report 17558268 (Version 3)
Quarter: 2023Q4

REPORT INFORMATION
  Report Type: Spontaneous
  Country: US (occurrence: US)
  Receive Date: 20200319
  Receipt Date: 20231101
  Transmission Date: 20240110
  Serious: Yes (Life-Threatening, Hospitalization, Other)
  Sender: FDA-Public Use
  Company Number: US-DRREDDYS-USA/USA/20/0120774

PATIENT
  Age: 32 Year
  Sex: Female

DRUGS (11)
  1. GEMCITABINE [Suspect]
     Active Substance: GEMCITABINE
     Indication: Hepatocellular carcinoma
  2. DEXAMETHASONE [Suspect]
     Active Substance: DEXAMETHASONE
     Indication: Hypertransaminasaemia
     Route: 065
  3. DEXAMETHASONE [Suspect]
     Active Substance: DEXAMETHASONE
     Indication: Nausea
  4. FLUOROURACIL [Suspect]
     Active Substance: FLUOROURACIL
     Indication: Hepatocellular carcinoma
  5. PREDNISONE [Suspect]
     Active Substance: PREDNISONE
     Indication: Rash
  6. LEUCOVORIN [Suspect]
     Active Substance: LEUCOVORIN\LEUCOVORIN CALCIUM
     Indication: Hepatocellular carcinoma
  7. OXALIPLATIN [Suspect]
     Active Substance: OXALIPLATIN
     Indication: Hepatocellular carcinoma
  8. OXALIPLATIN [Suspect]
     Active Substance: OXALIPLATIN
     Indication: Hepatocellular carcinoma
  9. SORAFENIB [Suspect]
     Active Substance: SORAFENIB
     Indication: Hepatocellular carcinoma
  10. NIVOLUMAB [Suspect]
     Active Substance: NIVOLUMAB
     Indication: Hepatocellular carcinoma
     Dosage: EVERY 2 WEEKS AT A STANDARD DOSE FOR 3 MONTHS
     Route: 065
  11. PONATINIB [Suspect]
     Active Substance: PONATINIB
     Indication: Hepatocellular carcinoma
     Route: 065

REACTIONS (5)
  - Hyperammonaemia [Recovering/Resolving]
  - Condition aggravated [Recovering/Resolving]
  - Hyperammonaemic encephalopathy [Unknown]
  - Soft tissue necrosis [Unknown]
  - Catabolic state [Unknown]
